FAERS Safety Report 18684139 (Version 1)
Quarter: 2020Q4

REPORT INFORMATION
  Report Type: Spontaneous
  Country: DE (occurrence: DE)
  Receive Date: 20201230
  Receipt Date: 20201230
  Transmission Date: 20210114
  Serious: Yes (Other)
  Sender: FDA-Public Use
  Company Number: DE-ALLERGAN-2049861US

PATIENT
  Sex: Female
  Weight: 83 kg

DRUGS (5)
  1. PAROXETIN [Suspect]
     Active Substance: PAROXETINE HYDROCHLORIDE
     Indication: SOCIAL PROBLEM
     Dosage: 40 MG
     Route: 065
     Dates: start: 2003, end: 2004
  2. ESCITALOPRAM OXALATE - BP [Suspect]
     Active Substance: ESCITALOPRAM OXALATE
     Indication: FATIGUE
     Dosage: UNK
     Route: 048
     Dates: start: 2004, end: 2004
  3. FLUVOXAMINE [Suspect]
     Active Substance: FLUVOXAMINE
     Indication: FATIGUE
     Dosage: DIFFERENT DOSAGES
     Route: 048
     Dates: start: 2001, end: 2004
  4. FLUVOXAMINE [Suspect]
     Active Substance: FLUVOXAMINE
     Indication: SOCIAL PROBLEM
     Dosage: UNK
  5. PAROXETIN [Suspect]
     Active Substance: PAROXETINE HYDROCHLORIDE
     Indication: FATIGUE

REACTIONS (3)
  - Product use in unapproved indication [Unknown]
  - Suicidal behaviour [Unknown]
  - Behaviour disorder [Unknown]
